FAERS Safety Report 5285051-X (Version None)
Quarter: 2007Q2

REPORT INFORMATION
  Report Type: 
  Country: None (occurrence: None)
  Receive Date: 20070403
  Receipt Date: 20070312
  Transmission Date: 20071010
  Serious: Yes (Other)
  Sender: FDA-Public Use
  Company Number: US-SANOFI-SYNTHELABO-A03200702294

PATIENT
  Sex: Female

DRUGS (2)
  1. AMBIEN [Suspect]
     Indication: INSOMNIA
     Dosage: 10 MG, CR 12.5 MG AT HS
     Route: 048
     Dates: start: 19960101, end: 20060315
  2. THYROXIN [Concomitant]
     Dosage: UNK
     Route: 065

REACTIONS (8)
  - AMNESIA [None]
  - BACK PAIN [None]
  - DIABETES MELLITUS NON-INSULIN-DEPENDENT [None]
  - DIARRHOEA [None]
  - EATING DISORDER [None]
  - MIGRAINE [None]
  - SLEEP WALKING [None]
  - WEIGHT INCREASED [None]
